FAERS Safety Report 7296736-8 (Version None)
Quarter: 2011Q1

REPORT INFORMATION
  Report Type: 
  Country: None (occurrence: None)
  Receive Date: 20110216
  Receipt Date: 20110214
  Transmission Date: 20110831
  Serious: Yes (Congenital Anomaly)
  Sender: FDA-Public Use
  Company Number: A0687256A

PATIENT
  Sex: Male
  Weight: 3.6 kg

DRUGS (3)
  1. PRENATAL VITAMINS [Concomitant]
     Route: 064
  2. TYLENOL [Concomitant]
     Route: 064
  3. PAXIL [Suspect]
     Indication: ANXIETY
     Route: 064
     Dates: start: 19920101, end: 20030101

REACTIONS (8)
  - CARDIAC MURMUR [None]
  - DRUG EXPOSURE DURING PREGNANCY [None]
  - PULMONARY ARTERY DILATATION [None]
  - PATENT DUCTUS ARTERIOSUS [None]
  - PULMONARY ARTERY STENOSIS CONGENITAL [None]
  - ATRIAL SEPTAL DEFECT [None]
  - MATERNAL DRUGS AFFECTING FOETUS [None]
  - PULMONARY VALVE INCOMPETENCE [None]
